FAERS Safety Report 8626675 (Version 2)
Quarter: 2014Q1

REPORT INFORMATION
  Report Type: Spontaneous
  Country: US (occurrence: None)
  Receive Date: 20120323
  Receipt Date: 20130305
  Transmission Date: 20141002
  Serious: Yes (Hospitalization, Other)
  Sender: FDA-Public Use
  Company Number: 163-21880-11062769

PATIENT
  Age: 66 Year
  Sex: Male

DRUGS (11)
  1. REVLIMID [Suspect]
     Indication: PLASMA CELL MYELOMA
     Dosage: 25 MG, DAYS 1-21, PO; 10 MG, DAILY FOR 28 DAYS, PO; 25 MG, DAILY FOR 21 DAYS, PO
     Route: 048
     Dates: start: 200811
  2. ARIXTRA [Concomitant]
  3. METFORMIN HYDROCHLORIDE [Concomitant]
  4. ACTOS [Concomitant]
  5. COUMADIN ( WARFARIN SODIUM) [Concomitant]
  6. HYDROCHLOROTHIAZIDE ( HYDROCHOROTHIAZIDE) [Concomitant]
  7. LISPRO INSULIN ( IINSULIN LISPRO) [Concomitant]
  8. NPH INSULIN ( INSULIN INJECTION, ISOPHANE) [Concomitant]
  9. RAMIPRIL ( RAMIPRIL) [Concomitant]
  10. PERCOCET ( OXYCOCET) [Concomitant]
  11. PIOGLITAZONE ( PIOGLITAZONE) [Concomitant]

REACTIONS (2)
  - Renal failure [None]
  - Pulmonary embolism [None]
